FAERS Safety Report 9894184 (Version 2)
Quarter: 2014Q1

REPORT INFORMATION
  Report Type: Spontaneous
  Country: US (occurrence: US)
  Receive Date: 20140213
  Receipt Date: 20140221
  Transmission Date: 20141002
  Serious: Yes (Other)
  Sender: FDA-Public Use
  Company Number: US-ABBVIE-14P-163-1199233-00

PATIENT
  Sex: Female
  Weight: 99.88 kg

DRUGS (3)
  1. HUMIRA [Suspect]
     Indication: RHEUMATOID ARTHRITIS
  2. METHOTREXATE [Concomitant]
     Indication: PRODUCT USED FOR UNKNOWN INDICATION
     Dosage: UNKNOWN
  3. PREDNISONE [Concomitant]
     Indication: PRODUCT USED FOR UNKNOWN INDICATION
     Dosage: UNKNOWN

REACTIONS (9)
  - Tendon rupture [Unknown]
  - Lupus-like syndrome [Unknown]
  - Tendon rupture [Unknown]
  - Ligament rupture [Unknown]
  - Ligament rupture [Unknown]
  - Muscle spasms [Unknown]
  - Vasculitis [Unknown]
  - Abasia [Unknown]
  - Meniscus injury [Unknown]
